FAERS Safety Report 20092741 (Version 1)
Quarter: 2021Q4

REPORT INFORMATION
  Report Type: Other
  Country: IR (occurrence: None)
  Receive Date: 20211120
  Receipt Date: 20211120
  Transmission Date: 20220304
  Serious: Yes (Hospitalization)
  Sender: FDA-Public Use
  Company Number: IR-ROCHE-2959732

PATIENT
  Age: 67 Year
  Sex: Male

DRUGS (4)
  1. RITUXIMAB [Suspect]
     Active Substance: RITUXIMAB
     Indication: Granulomatosis with polyangiitis
     Dosage: INDUCTION THERAPY, THE PATIENT WAS IMMEDIATELY TREATED WITH 500 MG/DAY OF RITUXIMAB (TOTAL CUMULATIV
     Route: 065
  2. RITUXIMAB [Suspect]
     Active Substance: RITUXIMAB
     Dosage: EVERY 6 MONTHS FOR SIX CONSECUTIVE PERIODS.
     Route: 065
  3. METHYLPREDNISOLONE [Suspect]
     Active Substance: METHYLPREDNISOLONE
     Indication: Granulomatosis with polyangiitis
     Dosage: 500 MG PULSE (1 G/DAY) FOR 3 DAYS.
     Route: 065
  4. PREDNISOLONE [Suspect]
     Active Substance: PREDNISOLONE
     Indication: Granulomatosis with polyangiitis
     Dosage: 1.25 MG/DAY
     Route: 065

REACTIONS (1)
  - COVID-19 pneumonia [Recovered/Resolved]
